FAERS Safety Report 18735350 (Version 1)
Quarter: 2021Q1

REPORT INFORMATION
  Report Type: Spontaneous
  Country: US (occurrence: US)
  Receive Date: 20210112
  Receipt Date: 20210112
  Transmission Date: 20210419
  Serious: Yes (Hospitalization)
  Sender: FDA-Public Use
  Company Number: None

PATIENT
  Age: 64 Year
  Sex: Male
  Weight: 94.8 kg

DRUGS (2)
  1. BENAZEPRIL (BENAZEPRIL HCL 20MG TAB) [Suspect]
     Active Substance: BENAZEPRIL HYDROCHLORIDE
     Indication: CONGENITAL CYSTIC KIDNEY DISEASE
  2. BENAZEPRIL (BENAZEPRIL HCL 20MG TAB) [Suspect]
     Active Substance: BENAZEPRIL HYDROCHLORIDE
     Indication: HYPERTENSION
     Route: 048
     Dates: start: 20200910, end: 20210104

REACTIONS (2)
  - Oral pain [None]
  - Angioedema [None]

NARRATIVE: CASE EVENT DATE: 20210104
